FAERS Safety Report 8818862 (Version 2)
Quarter: 2012Q4

REPORT INFORMATION
  Report Type: 
  Country: US (occurrence: US)
  Receive Date: 20121001
  Receipt Date: 20121031
  Transmission Date: 20130627
  Serious: Yes (Death)
  Sender: FDA-Public Use
  Company Number: US-JNJFOC-20120911446

PATIENT
  Sex: Male
  Weight: 190.51 kg

DRUGS (11)
  1. REMICADE [Suspect]
     Indication: CROHN^S DISEASE
     Route: 042
     Dates: start: 2008
  2. SIMVASTATIN [Concomitant]
     Route: 065
  3. ACTOS [Concomitant]
     Route: 065
  4. WELLBUTRIN [Concomitant]
     Route: 065
  5. AVAPRO [Concomitant]
     Route: 065
  6. GLIPIZIDE [Concomitant]
     Route: 065
  7. PROZAC [Concomitant]
     Route: 065
  8. MIRAPEX [Concomitant]
     Route: 065
  9. NEXIUM [Concomitant]
     Route: 065
  10. METFORMIN [Concomitant]
     Route: 065
  11. PROVIGIL [Concomitant]
     Route: 065

REACTIONS (1)
  - Death [Fatal]
